FAERS Safety Report 24282435 (Version 1)
Quarter: 2024Q3

REPORT INFORMATION
  Report Type: Spontaneous
  Country: ES (occurrence: ES)
  Receive Date: 20240904
  Receipt Date: 20240904
  Transmission Date: 20241016
  Serious: Yes (Other)
  Sender: BIOVITRUM
  Company Number: ES-BIOVITRUM-2024-ES-011604

PATIENT
  Age: 23 Year
  Sex: Female

DRUGS (1)
  1. KINERET [Suspect]
     Active Substance: ANAKINRA
     Indication: Still^s disease

REACTIONS (1)
  - Toxic skin eruption [Unknown]
